FAERS Safety Report 5532592-3 (Version None)
Quarter: 2007Q4

REPORT INFORMATION
  Report Type: 
  Country: None (occurrence: None)
  Receive Date: 20071203
  Receipt Date: 20071122
  Transmission Date: 20080405
  Serious: Yes (Hospitalization, Other)
  Sender: FDA-Public Use
  Company Number: CZ-BOEHRINGER INGELHEIM PHARMACEUTICALS, INC.-2007-AP-00361AP

PATIENT
  Sex: Female

DRUGS (1)
  1. MOVALIS [Suspect]
     Indication: ARTHRALGIA
     Route: 048
     Dates: start: 20070801, end: 20071024

REACTIONS (6)
  - ABDOMINAL PAIN [None]
  - AGRANULOCYTOSIS [None]
  - ANAEMIA [None]
  - APPENDICEAL ABSCESS [None]
  - THROMBOCYTOPENIA [None]
  - VOMITING [None]
